FAERS Safety Report 20454948 (Version 2)
Quarter: 2022Q1

REPORT INFORMATION
  Report Type: Spontaneous
  Country: US (occurrence: US)
  Receive Date: 20220210
  Receipt Date: 20220216
  Transmission Date: 20220424
  Serious: No
  Sender: FDA-Public Use
  Company Number: US-MLMSERVICE-20220117-3316411-1

PATIENT
  Age: 19 Year
  Sex: Male

DRUGS (4)
  1. SERTRALINE [Suspect]
     Active Substance: SERTRALINE HYDROCHLORIDE
     Indication: Obsessive-compulsive disorder
     Dosage: 25 MILLIGRAM, QD (25 MG OF QD, UP TITRATED 175MG QD OVER COURSE 2 MONTHS)
     Route: 065
  2. SERTRALINE [Suspect]
     Active Substance: SERTRALINE HYDROCHLORIDE
     Dosage: 175 MILLIGRAM, QD (25 MG SERTRALINE DAILY, WHICH WAS UP TITRATED TO 175 MG QD OVER COURSE 2 MONTHS)
     Route: 065
  3. SERTRALINE [Suspect]
     Active Substance: SERTRALINE HYDROCHLORIDE
     Dosage: 125 MILLIGRAM, QD (DECREASED 125MG DAILY)
     Route: 065
  4. SERTRALINE [Suspect]
     Active Substance: SERTRALINE HYDROCHLORIDE
     Dosage: 175 MILLIGRAM, QD (OVER TIME, TITRATED BACK 175 MG)
     Route: 065

REACTIONS (3)
  - Nausea [Unknown]
  - Electric shock sensation [Recovering/Resolving]
  - Tinnitus [Unknown]
